FAERS Safety Report 8877080 (Version 1)
Quarter: 2012Q4

REPORT INFORMATION
  Report Type: 
  Country: US (occurrence: US)
  Receive Date: 20121023
  Receipt Date: 20121023
  Transmission Date: 20130627
  Serious: No
  Sender: FDA-Public Use
  Company Number: US-AMGEN-USASP2012056029

PATIENT
  Sex: Male
  Weight: 47.17 kg

DRUGS (2)
  1. ENBREL [Suspect]
     Indication: PRODUCT USED FOR UNKNOWN INDICATION
     Dosage: 25 mg, 2 times/wk
     Route: 058
  2. PREDNISONE [Concomitant]
     Dosage: 10 mg, UNK

REACTIONS (1)
  - Hepatic enzyme increased [Unknown]
